FAERS Safety Report 23922036 (Version 1)
Quarter: 2024Q2

REPORT INFORMATION
  Report Type: Report from Study
  Country: KR (occurrence: KR)
  Receive Date: 20240531
  Receipt Date: 20240531
  Transmission Date: 20240716
  Serious: Yes (Hospitalization)
  Sender: FDA-Public Use
  Company Number: KR-ACTELION-A-CH2020-206273

PATIENT
  Age: 46 Year
  Sex: Female
  Weight: 64 kg

DRUGS (7)
  1. OPSUMIT [Suspect]
     Active Substance: MACITENTAN
     Indication: Pulmonary arterial hypertension
     Dosage: 10 MG, OD
     Route: 048
     Dates: start: 20191122
  2. LIPINON [Concomitant]
     Indication: Prophylaxis
     Dosage: 1 DF, QD
     Route: 048
     Dates: start: 20150730, end: 20200219
  3. YAZ [DROSPIRENONE;ETHINYLESTRADIOL BETADEX CLATHRATE] [Concomitant]
     Indication: Prophylaxis
     Dosage: 1 DF, QD
     Route: 048
     Dates: start: 20191112
  4. MAGNESIUM OXIDE [Concomitant]
     Active Substance: MAGNESIUM OXIDE
     Indication: Prophylaxis
     Dosage: 2 DF
     Dates: start: 20191116
  5. CRESTOR [Concomitant]
     Active Substance: ROSUVASTATIN CALCIUM
     Indication: Prophylaxis
     Dosage: 1 DF, QD
     Route: 048
     Dates: start: 20200219
  6. ALDACTONE [Concomitant]
     Active Substance: SPIRONOLACTONE
     Dosage: 1 DF, QD
     Route: 048
     Dates: start: 20191119
  7. LASIX [Concomitant]
     Active Substance: FUROSEMIDE
     Dosage: 80 MG, QD
     Route: 048
     Dates: start: 20070405

REACTIONS (5)
  - Appendicitis [Recovered/Resolved]
  - Abdominal pain lower [Recovered/Resolved]
  - Nausea [Recovered/Resolved]
  - Appendicectomy [Unknown]
  - Procedural pain [Recovered/Resolved]

NARRATIVE: CASE EVENT DATE: 20200529
